FAERS Safety Report 18300670 (Version 1)
Quarter: 2020Q3

REPORT INFORMATION
  Report Type: Spontaneous
  Country: US (occurrence: US)
  Receive Date: 20200923
  Receipt Date: 20200923
  Transmission Date: 20201103
  Serious: No
  Sender: FDA-Public Use
  Company Number: None

PATIENT
  Age: 67 Year
  Sex: Male

DRUGS (1)
  1. RIVAROXABAN (RIVAROXABAN 15MG TAB) [Suspect]
     Active Substance: RIVAROXABAN
     Indication: DEEP VEIN THROMBOSIS

REACTIONS (5)
  - Gastric haemorrhage [None]
  - Blood pressure decreased [None]
  - Headache [None]
  - Heart rate increased [None]
  - Haemoglobin decreased [None]

NARRATIVE: CASE EVENT DATE: 20200403
